FAERS Safety Report 9442267 (Version 1)
Quarter: 2013Q3

REPORT INFORMATION
  Report Type: Spontaneous
  Country: TR (occurrence: TR)
  Receive Date: 20130806
  Receipt Date: 20130806
  Transmission Date: 20140515
  Serious: Yes (Other)
  Sender: FDA-Public Use
  Company Number: TR-MYLANLABS-2013S1016901

PATIENT
  Age: 50 Year
  Sex: Female

DRUGS (8)
  1. IRINOTECAN [Suspect]
     Indication: ADENOCARCINOMA OF COLON
     Dosage: 125 MG/M2
     Route: 065
  2. FLUOROURACIL [Suspect]
     Indication: ADENOCARCINOMA OF COLON
     Dosage: 500 MG/M2
     Route: 065
  3. FOLINIC ACID [Suspect]
     Indication: ADENOCARCINOMA OF COLON
     Dosage: 20 MG/M2
     Route: 065
  4. DEXAMETHASONE [Suspect]
     Indication: PROPHYLAXIS OF NAUSEA AND VOMITING
     Dosage: 16 MG/DAY
     Route: 042
  5. ONDANSETRON [Suspect]
     Indication: PROPHYLAXIS OF NAUSEA AND VOMITING
     Dosage: 8 MG/DAY
     Route: 042
  6. CODEINE [Suspect]
     Indication: ANALGESIC THERAPY
     Dosage: 60 MG/DAY
     Route: 048
  7. PIROXICAM [Suspect]
     Indication: ANALGESIC THERAPY
     Dosage: 20MG TABLETS/DAY
     Route: 065
  8. OMEPRAZOLE [Suspect]
     Indication: PROPHYLAXIS AGAINST GASTROINTESTINAL ULCER
     Dosage: 40 MG/DAY
     Route: 065

REACTIONS (1)
  - Pancreatitis acute [Recovering/Resolving]
